FAERS Safety Report 20762742 (Version 2)
Quarter: 2022Q3

REPORT INFORMATION
  Report Type: Spontaneous
  Country: US (occurrence: US)
  Receive Date: 20220428
  Receipt Date: 20220728
  Transmission Date: 20221026
  Serious: No
  Sender: FDA-Public Use
  Company Number: US-PFIZER INC-202200512588

PATIENT
  Age: 61 Year
  Sex: Female

DRUGS (36)
  1. IBRANCE [Suspect]
     Active Substance: PALBOCICLIB
     Indication: Breast cancer female
     Dosage: 125 MG, CYCLIC (DID 2 WEEKS OF THE SECOND CYCLE OF 125MG)
     Dates: start: 20220201, end: 2022
  2. IBRANCE [Suspect]
     Active Substance: PALBOCICLIB
     Dosage: 100 MG, CYCLIC (1 DAILY, 21 DAYS ON, 7 DAYS OFF)
     Route: 048
     Dates: start: 20220201
  3. ACYCLOVIR [Concomitant]
     Active Substance: ACYCLOVIR
  4. ADVIL [Concomitant]
     Active Substance: IBUPROFEN
  5. ALBUTEROL [Concomitant]
     Active Substance: ALBUTEROL
  6. ALLOPURINOL [Concomitant]
     Active Substance: ALLOPURINOL
  7. ATORVASTATIN [Concomitant]
     Active Substance: ATORVASTATIN
  8. BREO ELLIPTA [Concomitant]
     Active Substance: FLUTICASONE FUROATE\VILANTEROL TRIFENATATE
  9. BUDESONIDE [Concomitant]
     Active Substance: BUDESONIDE
  10. BUMETANIDE [Concomitant]
     Active Substance: BUMETANIDE
  11. CARVEDILOL [Concomitant]
     Active Substance: CARVEDILOL
  12. CYANOCOBALAMIN [Concomitant]
     Active Substance: CYANOCOBALAMIN
  13. DICLOFENAC [Concomitant]
     Active Substance: DICLOFENAC
  14. ENTRESTO [Concomitant]
     Active Substance: SACUBITRIL\VALSARTAN
  15. FASLODEX [Concomitant]
     Active Substance: FULVESTRANT
  16. FLUOXETINE [Concomitant]
     Active Substance: FLUOXETINE HYDROCHLORIDE
  17. GABAPENTIN [Concomitant]
     Active Substance: GABAPENTIN
  18. HYDRALAZINE [Concomitant]
     Active Substance: HYDRALAZINE HYDROCHLORIDE
  19. KETOROLAC [Concomitant]
     Active Substance: KETOROLAC TROMETHAMINE
  20. LATANOPROST [Concomitant]
     Active Substance: LATANOPROST
  21. LEVOFLOXACIN [Concomitant]
     Active Substance: LEVOFLOXACIN
  22. LORAZEPAM [Concomitant]
     Active Substance: LORAZEPAM
  23. NORCO [Concomitant]
     Active Substance: ACETAMINOPHEN\HYDROCODONE BITARTRATE
  24. OXYCODONE [Concomitant]
     Active Substance: OXYCODONE
  25. RABEPRAZOLE [Concomitant]
     Active Substance: RABEPRAZOLE
  26. SERTRALINE [Concomitant]
     Active Substance: SERTRALINE HYDROCHLORIDE
  27. SPIRONOLACTONE [Concomitant]
     Active Substance: SPIRONOLACTONE
  28. STELARA [Concomitant]
     Active Substance: USTEKINUMAB
  29. TYLENOL [Concomitant]
     Active Substance: ACETAMINOPHEN
  30. VALACYCLOVIR [Concomitant]
     Active Substance: VALACYCLOVIR HYDROCHLORIDE
  31. VITAMIN D3 [Concomitant]
     Active Substance: CHOLECALCIFEROL
  32. XGEVA [Concomitant]
     Active Substance: DENOSUMAB
  33. XOLAIR [Concomitant]
     Active Substance: OMALIZUMAB
  34. ZOFRAN [Concomitant]
     Active Substance: ONDANSETRON HYDROCHLORIDE
  35. ZOLPIDEM [Concomitant]
     Active Substance: ZOLPIDEM TARTRATE
  36. ZYRTEC [Concomitant]
     Active Substance: CETIRIZINE HYDROCHLORIDE

REACTIONS (3)
  - Neutrophil count decreased [Unknown]
  - Blood calcium decreased [Unknown]
  - Urinary tract infection [Unknown]

NARRATIVE: CASE EVENT DATE: 20220101
